FAERS Safety Report 9748705 (Version 1)
Quarter: 2013Q4

REPORT INFORMATION
  Report Type: Spontaneous
  Country: US (occurrence: None)
  Receive Date: 20131209
  Receipt Date: 20131209
  Transmission Date: 20140711
  Serious: Yes (Other)
  Sender: FDA-Public Use
  Company Number: HA13-437-AE

PATIENT
  Age: 70 Year
  Sex: Female
  Weight: 67.36 kg

DRUGS (3)
  1. NAPROXEN SODIUM [Suspect]
     Indication: ARTHRALGIA
     Dosage: 3 MONTHS AGO-11/18/13, TABLET BID, ORAL
     Route: 048
     Dates: end: 20131118
  2. TYLENOL [Concomitant]
  3. ALLEGRA [Concomitant]

REACTIONS (4)
  - Headache [None]
  - Blood pressure increased [None]
  - Chest pain [None]
  - Extrasystoles [None]
